FAERS Safety Report 5912346-6 (Version None)
Quarter: 2008Q4

REPORT INFORMATION
  Report Type: 
  Country: None (occurrence: None)
  Receive Date: 20081007
  Receipt Date: 20081007
  Transmission Date: 20090506
  Serious: Yes (Other)
  Sender: FDA-Public Use
  Company Number: None

PATIENT
  Age: 47 Year
  Sex: Female

DRUGS (2)
  1. LAMOTRIGINE [Suspect]
     Indication: COMPLEX PARTIAL SEIZURES
     Dosage: 200 MG BID PO
     Route: 048
     Dates: start: 20080910, end: 20080912
  2. LAMOTRIGINE [Suspect]
     Dosage: 150 MG BID PO
     Route: 048
     Dates: start: 20080913, end: 20081002

REACTIONS (5)
  - CONVULSION [None]
  - DIZZINESS [None]
  - DRUG TOXICITY [None]
  - FALL [None]
  - PRODUCT QUALITY ISSUE [None]
